FAERS Safety Report 13902638 (Version 1)
Quarter: 2017Q3

REPORT INFORMATION
  Report Type: Spontaneous
  Country: US (occurrence: US)
  Receive Date: 20170824
  Receipt Date: 20170824
  Transmission Date: 20171127
  Serious: No
  Sender: FDA-Public Use
  Company Number: US-ROCHE-1130110

PATIENT
  Sex: Female

DRUGS (4)
  1. CIPRO [Concomitant]
     Active Substance: CIPROFLOXACIN HYDROCHLORIDE
  2. STEROIDS NOS [Concomitant]
     Active Substance: UNSPECIFIED INGREDIENT
  3. HERCEPTIN [Suspect]
     Active Substance: TRASTUZUMAB
     Indication: BREAST CANCER
     Route: 065
     Dates: start: 20010416
  4. ANTIBIOTICS NOS [Concomitant]
     Active Substance: UNSPECIFIED INGREDIENT

REACTIONS (7)
  - Cellulitis [Unknown]
  - Diarrhoea [Unknown]
  - Weight decreased [Unknown]
  - Vomiting [Unknown]
  - Peripheral swelling [Unknown]
  - Nausea [Unknown]
  - Arthralgia [Unknown]
